FAERS Safety Report 19901386 (Version 1)
Quarter: 2021Q3

REPORT INFORMATION
  Report Type: Spontaneous
  Country: US (occurrence: US)
  Receive Date: 20210930
  Receipt Date: 20210930
  Transmission Date: 20211014
  Serious: Yes (Hospitalization)
  Sender: FDA-Public Use
  Company Number: None

PATIENT
  Age: 49 Year
  Sex: Male
  Weight: 99 kg

DRUGS (4)
  1. CBD OIL [Concomitant]
     Active Substance: CANNABIDIOL\HERBALS
  2. SERTRALINE [Suspect]
     Active Substance: SERTRALINE HYDROCHLORIDE
     Indication: DEPRESSION
     Dosage: ?          QUANTITY:1 TABLET(S);OTHER FREQUENCY:ONCE;?
     Route: 048
     Dates: start: 20210921, end: 20210921
  3. ASHWAGANDHA [Concomitant]
     Active Substance: HERBALS
  4. COLESEVELAM [Concomitant]
     Active Substance: COLESEVELAM

REACTIONS (5)
  - Hyperhidrosis [None]
  - Panic attack [None]
  - Visual impairment [None]
  - Heart rate decreased [None]
  - Confusional state [None]

NARRATIVE: CASE EVENT DATE: 20210921
